FAERS Safety Report 9554069 (Version 1)
Quarter: 2013Q3

REPORT INFORMATION
  Report Type: Spontaneous
  Country: NL (occurrence: NL)
  Receive Date: 20130925
  Receipt Date: 20130925
  Transmission Date: 20140515
  Serious: Yes (Death)
  Sender: FDA-Public Use
  Company Number: NL-TEVA-431920ISR

PATIENT
  Age: 77 Year
  Sex: Female
  Weight: 64 kg

DRUGS (9)
  1. TRIMETHOPRIM TABLET 100MG [Suspect]
     Indication: URINARY TRACT INFECTION
     Dosage: ONCE DAILY ONE PIECE
     Route: 048
     Dates: start: 201302
  2. MOVIPREP POEDER VOOR DRANK IN SACHET A+B [Interacting]
     Indication: COLONOSCOPY
     Dosage: ONCE DUE TO PREPARATION, TOTAL OF 2 DOSAGES
     Route: 048
     Dates: start: 20130528
  3. FRAGMIN 2500 INJVLST 12.500IE/ML WWSP 0,2ML [Concomitant]
     Dosage: FRAGMIN 12.000 IE TO BRIDGE DUE TO SCOPY
     Route: 048
     Dates: start: 20130423
  4. MIDAZOLAM ACCORD INJVLST 1MG/ML AMPUL 5ML [Concomitant]
     Indication: COLONOSCOPY
     Dosage: DOSE UNKNOWN
     Dates: start: 20130530, end: 20130530
  5. ADRENALINE CF INJVLST 1MG/ML AMPUL 1ML [Concomitant]
     Indication: COLONOSCOPY
     Dates: start: 20130531
  6. GLUCOSE/NACL INFVLST 25/4.5MG/ML [Concomitant]
     Dosage: INFUSION OF 1500 CC GLUC/NACL PER 24 HOURS
     Dates: start: 20130529
  7. LANOXIN TABLET 0,125MG [Concomitant]
     Dosage: 1 DD 1
     Route: 048
  8. ACENOCOUMAROL TABLET 1MG [Concomitant]
     Dosage: BASED ON INTERNATIONAL NORMALISED RATIO (INR)
     Route: 048
  9. METOPROLOL TABLET 100MG [Concomitant]
     Dosage: 100 MILLIGRAM DAILY; 1 DD 1
     Route: 048

REACTIONS (4)
  - Ventricular fibrillation [Fatal]
  - Torsade de pointes [Fatal]
  - Hypokalaemia [Fatal]
  - Drug interaction [Unknown]
